FAERS Safety Report 9319558 (Version 5)
Quarter: 2016Q1

REPORT INFORMATION
  Report Type: Spontaneous
  Country: US (occurrence: US)
  Receive Date: 20130530
  Receipt Date: 20160331
  Transmission Date: 20160526
  Serious: No
  Sender: FDA-Public Use
  Company Number: US-GLAXOSMITHKLINE-A1007144A

PATIENT
  Age: 55 Year
  Sex: Female

DRUGS (8)
  1. FLOLAN [Suspect]
     Active Substance: EPOPROSTENOL SODIUM
     Indication: PULMONARY ARTERIAL HYPERTENSION
     Dosage: CONTINUOUS
     Route: 042
     Dates: start: 20061114
  2. FLOLAN [Suspect]
     Active Substance: EPOPROSTENOL SODIUM
     Dosage: 30.86 NG/KG/MIN
     Route: 042
  3. TEGADERM DRESSING [Suspect]
     Active Substance: 2-HYDROXYETHYL METHACRYLATE
     Indication: WOUND TREATMENT
  4. COUMADIN [Concomitant]
     Active Substance: WARFARIN SODIUM
  5. FUROSEMIDE. [Concomitant]
     Active Substance: FUROSEMIDE
  6. NIFEDIPINE. [Concomitant]
     Active Substance: NIFEDIPINE
  7. FLOLAN [Suspect]
     Active Substance: EPOPROSTENOL SODIUM
     Dosage: 30.859 DF, UNK, 60,000 NG/ML, , PUMP RATE:80ML/24 HR, 1.5MG
     Route: 065
  8. FLOLAN [Suspect]
     Active Substance: EPOPROSTENOL SODIUM
     Dosage: 30.86 DF
     Route: 065

REACTIONS (7)
  - Cough [Unknown]
  - Scratch [Unknown]
  - Skin disorder [Not Recovered/Not Resolved]
  - Dyspnoea [Unknown]
  - Blister [Unknown]
  - Catheter site pruritus [Unknown]
  - Application site pruritus [Unknown]

NARRATIVE: CASE EVENT DATE: 20121226
